FAERS Safety Report 15321360 (Version 4)
Quarter: 2018Q4

REPORT INFORMATION
  Report Type: Spontaneous
  Country: US (occurrence: US)
  Receive Date: 20180827
  Receipt Date: 20181031
  Transmission Date: 20190204
  Serious: Yes (Other)
  Sender: FDA-Public Use
  Company Number: US-CELGENEUS-USA-20180806907

PATIENT
  Age: 75 Year
  Sex: Male

DRUGS (25)
  1. CYCLOBENZAP [Concomitant]
     Indication: PRODUCT USED FOR UNKNOWN INDICATION
     Route: 065
  2. DAPSONE. [Concomitant]
     Active Substance: DAPSONE
     Dosage: 100 MILLIGRAM
     Route: 065
     Dates: start: 20181009
  3. FLUCONAZ [Concomitant]
     Route: 048
     Dates: start: 20181008
  4. ONE TOUCH [Concomitant]
     Indication: PRODUCT USED FOR UNKNOWN INDICATION
     Route: 065
     Dates: start: 20181011
  5. IDHIFA [Suspect]
     Active Substance: ENASIDENIB MESYLATE
     Indication: ACUTE MYELOID LEUKAEMIA
     Dosage: 100 MILLIGRAM
     Route: 048
     Dates: start: 20180803, end: 20180809
  6. IDHIFA [Suspect]
     Active Substance: ENASIDENIB MESYLATE
     Dosage: 50 MILLIGRAM
     Route: 048
     Dates: start: 20180814
  7. IDHIFA [Suspect]
     Active Substance: ENASIDENIB MESYLATE
     Dosage: 50 MILLIGRAM
     Route: 048
     Dates: start: 20180912
  8. HYDROC/APAP [Concomitant]
     Indication: PRODUCT USED FOR UNKNOWN INDICATION
     Dosage: 10-325 MG
     Route: 065
     Dates: start: 20180820
  9. GABAPENTIN. [Concomitant]
     Active Substance: GABAPENTIN
     Indication: PRODUCT USED FOR UNKNOWN INDICATION
     Route: 048
     Dates: start: 20180909
  10. CHLORDIAZEP [Concomitant]
     Indication: PRODUCT USED FOR UNKNOWN INDICATION
     Route: 048
     Dates: start: 20181012
  11. MULTIVITAMIN [Concomitant]
     Active Substance: VITAMINS
     Indication: PRODUCT USED FOR UNKNOWN INDICATION
     Route: 065
     Dates: start: 20180820
  12. DAPSONE. [Concomitant]
     Active Substance: DAPSONE
     Indication: PRODUCT USED FOR UNKNOWN INDICATION
     Dosage: 100 MILLIGRAM
     Route: 065
     Dates: start: 20181006
  13. METFORMIN [Concomitant]
     Active Substance: METFORMIN HYDROCHLORIDE
     Indication: PRODUCT USED FOR UNKNOWN INDICATION
     Route: 048
     Dates: start: 20181015
  14. ACYCLOVIR. [Concomitant]
     Active Substance: ACYCLOVIR
     Route: 048
     Dates: start: 20180909
  15. DULOXETINE. [Concomitant]
     Active Substance: DULOXETINE
     Indication: PRODUCT USED FOR UNKNOWN INDICATION
     Dosage: 60 MILLIGRAM
     Route: 048
     Dates: start: 20171127
  16. DAPSONE. [Concomitant]
     Active Substance: DAPSONE
     Dosage: 100 MILLIGRAM
     Route: 065
     Dates: start: 20180912
  17. IDHIFA [Suspect]
     Active Substance: ENASIDENIB MESYLATE
     Dosage: 50 MILLIGRAM
     Route: 048
     Dates: start: 20181009
  18. AMLODIPINE [Concomitant]
     Active Substance: AMLODIPINE BESYLATE
     Indication: PRODUCT USED FOR UNKNOWN INDICATION
     Route: 065
  19. ASPIRIN. [Concomitant]
     Active Substance: ASPIRIN
     Indication: PRODUCT USED FOR UNKNOWN INDICATION
     Route: 048
     Dates: start: 20180820
  20. FLUCONAZ [Concomitant]
     Route: 048
     Dates: start: 20180909
  21. FLUCONAZ [Concomitant]
     Indication: PRODUCT USED FOR UNKNOWN INDICATION
     Route: 048
     Dates: start: 20181009
  22. GABAPENTIN. [Concomitant]
     Active Substance: GABAPENTIN
     Route: 048
     Dates: start: 20181005
  23. ACYCLOVIR. [Concomitant]
     Active Substance: ACYCLOVIR
     Indication: PRODUCT USED FOR UNKNOWN INDICATION
     Route: 048
     Dates: start: 20180910
  24. HYDROC/APAP [Concomitant]
     Dosage: 10-325 MG
     Route: 065
     Dates: start: 20180919
  25. DULOXETINE. [Concomitant]
     Active Substance: DULOXETINE
     Route: 048
     Dates: start: 20181007

REACTIONS (3)
  - Dementia [Not Recovered/Not Resolved]
  - Anger [Recovered/Resolved]
  - Confusional state [Not Recovered/Not Resolved]

NARRATIVE: CASE EVENT DATE: 20180809
